FAERS Safety Report 21480481 (Version 1)
Quarter: 2022Q4

REPORT INFORMATION
  Report Type: Report from Study
  Country: FR (occurrence: FR)
  Receive Date: 20221019
  Receipt Date: 20221019
  Transmission Date: 20230112
  Serious: Yes (Other)
  Sender: FDA-Public Use
  Company Number: FR-MYLANLABS-2022M1115148

PATIENT
  Age: 79 Year
  Sex: Male

DRUGS (6)
  1. BORTEZOMIB [Suspect]
     Active Substance: BORTEZOMIB
     Indication: Monoclonal gammopathy
     Dosage: UNK
     Route: 065
  2. BORTEZOMIB [Suspect]
     Active Substance: BORTEZOMIB
     Indication: Henoch-Schonlein purpura
  3. PREDNISONE [Suspect]
     Active Substance: PREDNISONE
     Indication: Monoclonal gammopathy
     Dosage: UNK
     Route: 065
  4. PREDNISONE [Suspect]
     Active Substance: PREDNISONE
     Indication: Henoch-Schonlein purpura
  5. MELPHALAN [Suspect]
     Active Substance: MELPHALAN
     Indication: Monoclonal gammopathy
     Dosage: UNK
     Route: 065
  6. MELPHALAN [Suspect]
     Active Substance: MELPHALAN
     Indication: Henoch-Schonlein purpura

REACTIONS (2)
  - Therapy non-responder [Unknown]
  - Off label use [Unknown]
